FAERS Safety Report 5449198-7 (Version None)
Quarter: 2007Q3

REPORT INFORMATION
  Report Type: 
  Country: None (occurrence: None)
  Receive Date: 20070911
  Receipt Date: 20070904
  Transmission Date: 20080115
  Serious: Yes (Hospitalization)
  Sender: FDA-Public Use
  Company Number: ZW-BOEHRINGER INGELHEIM PHARMACEUTICALS, INC.-2007-BP-19494BP

PATIENT
  Sex: Female
  Weight: 4 kg

DRUGS (3)
  1. VIRAMUNE [Suspect]
     Indication: PROPHYLAXIS AGAINST HIV INFECTION
     Route: 048
     Dates: start: 20070627, end: 20070815
  2. PLACEBO (BLIND) [Suspect]
     Indication: PROPHYLAXIS AGAINST HIV INFECTION
     Route: 048
     Dates: start: 20070627, end: 20070815
  3. CO-TRIMOXAZOLE [Concomitant]
     Dates: start: 20070802, end: 20070815

REACTIONS (9)
  - ALANINE AMINOTRANSFERASE INCREASED [None]
  - CRYING [None]
  - HEART RATE INCREASED [None]
  - JAUNDICE [None]
  - NEONATAL INFECTIVE MASTITIS [None]
  - NEUTROPHIL COUNT DECREASED [None]
  - OPHTHALMIA NEONATORUM [None]
  - PNEUMONIA [None]
  - TACHYPNOEA [None]
